FAERS Safety Report 9297013 (Version 1)
Quarter: 2013Q2

REPORT INFORMATION
  Report Type: Spontaneous
  Country: US (occurrence: US)
  Receive Date: 20130519
  Receipt Date: 20130519
  Transmission Date: 20140414
  Serious: No
  Sender: FDA-Public Use
  Company Number: US-ALLERGAN-1218258US

PATIENT
  Sex: Male

DRUGS (7)
  1. LASTACAFT [Suspect]
     Indication: CONJUNCTIVITIS ALLERGIC
     Dosage: 2 GTT, QD
     Route: 047
     Dates: start: 201203, end: 201208
  2. LISINOPRIL HYDROCHLORTHIAZID [Concomitant]
     Indication: HYPERTENSION
     Dosage: 20125 MG, UNK
     Route: 048
  3. AMLODIPINE [Concomitant]
     Indication: HYPERTENSION
     Dosage: 5 MG, UNK
     Route: 048
  4. FLOMAX [Concomitant]
     Indication: BENIGN PROSTATIC HYPERPLASIA
     Dosage: 0.4 MG, UNK
     Route: 048
  5. LANSOPRAZOLE [Concomitant]
     Indication: GASTROOESOPHAGEAL REFLUX DISEASE
     Dosage: 30 MG, UNK
     Route: 048
  6. ADVAIR [Concomitant]
     Indication: ASTHMA
     Dosage: UNK UNK, QD
     Route: 055
  7. PROZAC [Concomitant]
     Indication: DEPRESSION
     Dosage: UNK UNK, QD
     Route: 048

REACTIONS (5)
  - Conjunctival follicles [Recovered/Resolved]
  - Punctate keratitis [Recovered/Resolved]
  - Ocular hyperaemia [Recovered/Resolved]
  - Adenoviral conjunctivitis [Recovered/Resolved]
  - Ocular discomfort [Recovered/Resolved]
